FAERS Safety Report 14003199 (Version 3)
Quarter: 2018Q1

REPORT INFORMATION
  Report Type: Spontaneous
  Country: US (occurrence: US)
  Receive Date: 20170922
  Receipt Date: 20180205
  Transmission Date: 20180508
  Serious: Yes (Other)
  Sender: FDA-Public Use
  Company Number: US-JNJFOC-20170916369

PATIENT
  Sex: Female
  Weight: 70.31 kg

DRUGS (16)
  1. TYLENOL EXTRA STRENGTH [Suspect]
     Active Substance: ACETAMINOPHEN
     Indication: MIGRAINE
     Route: 048
  2. VITAMIN D3 [Concomitant]
     Active Substance: CHOLECALCIFEROL
     Indication: VITAMIN D DEFICIENCY
     Route: 048
     Dates: start: 2012, end: 2017
  3. TOPAMAX [Suspect]
     Active Substance: TOPIRAMATE
     Indication: MIGRAINE
     Route: 048
  4. VITAMIN D3 [Concomitant]
     Active Substance: CHOLECALCIFEROL
     Indication: VITAMIN D DEFICIENCY
     Dosage: ONCE OR TWICE WEEKLY
     Route: 048
     Dates: start: 2017
  5. BUTALBITAL, ACETAMINOPHEN, AND CAFFEINE [Concomitant]
     Active Substance: ACETAMINOPHEN\BUTALBITAL\CAFFEINE
     Indication: PAIN
     Route: 048
     Dates: start: 2002
  6. TOPAMAX [Suspect]
     Active Substance: TOPIRAMATE
     Indication: MIGRAINE
     Route: 048
     Dates: start: 2002, end: 2002
  7. ATENOLOL. [Concomitant]
     Active Substance: ATENOLOL
     Indication: BLOOD PRESSURE ABNORMAL
     Route: 048
     Dates: start: 2002
  8. L ARGININE [Concomitant]
     Active Substance: ARGININE
     Indication: MUSCLE TONE DISORDER
     Route: 048
     Dates: start: 2014
  9. TRIAMTERENE AND HYDROCHLOROTHIAZIDE [Concomitant]
     Active Substance: HYDROCHLOROTHIAZIDE\TRIAMTERENE
     Indication: BLOOD PRESSURE ABNORMAL
     Route: 048
  10. ZITHROMAX [Suspect]
     Active Substance: AZITHROMYCIN DIHYDRATE
     Indication: PRODUCT USED FOR UNKNOWN INDICATION
     Route: 065
  11. TRIAMTERENE AND HYDROCHLOROTHIAZIDE [Concomitant]
     Active Substance: HYDROCHLOROTHIAZIDE\TRIAMTERENE
     Indication: BLOOD PRESSURE ABNORMAL
     Route: 048
     Dates: start: 2002
  12. TOPAMAX [Suspect]
     Active Substance: TOPIRAMATE
     Indication: MIGRAINE
     Route: 048
  13. XANAX [Concomitant]
     Active Substance: ALPRAZOLAM
     Indication: PANIC ATTACK
     Route: 048
  14. KETOROLAC [Concomitant]
     Active Substance: KETOROLAC\KETOROLAC TROMETHAMINE
     Indication: PAIN
     Route: 048
     Dates: start: 2002
  15. DILANTIN [Concomitant]
     Active Substance: PHENYTOIN
     Indication: MIGRAINE
     Route: 065
  16. L ARGININE [Concomitant]
     Active Substance: ARGININE
     Indication: MUSCLE DISORDER
     Route: 048
     Dates: start: 2014

REACTIONS (14)
  - Body height decreased [Unknown]
  - Tinnitus [Not Recovered/Not Resolved]
  - Memory impairment [Not Recovered/Not Resolved]
  - Muscular weakness [Recovered/Resolved]
  - Deafness unilateral [Not Recovered/Not Resolved]
  - Off label use [Unknown]
  - Drug ineffective for unapproved indication [Unknown]
  - Aneurysm [Recovered/Resolved]
  - Lip pain [Not Recovered/Not Resolved]
  - Migraine [Unknown]
  - Wrong technique in product usage process [Unknown]
  - Fall [Recovered/Resolved]
  - Meningeal disorder [Unknown]
  - Lip injury [Not Recovered/Not Resolved]

NARRATIVE: CASE EVENT DATE: 2002
